FAERS Safety Report 9638577 (Version 2)
Quarter: 2014Q1

REPORT INFORMATION
  Report Type: Spontaneous
  Country: US (occurrence: US)
  Receive Date: 20131022
  Receipt Date: 20140221
  Transmission Date: 20141002
  Serious: Yes (Death)
  Sender: FDA-Public Use
  Company Number: US-BRISTOL-MYERS SQUIBB COMPANY-19549534

PATIENT
  Age: 67 Year
  Sex: Female
  Weight: 126.07 kg

DRUGS (10)
  1. BYETTA PEN DISPOSABLE [Suspect]
     Indication: TYPE 2 DIABETES MELLITUS
     Dates: start: 20080421, end: 200809
  2. JANUVIA [Suspect]
     Indication: TYPE 2 DIABETES MELLITUS
     Dates: start: 20080115
  3. JANUMET [Suspect]
     Indication: TYPE 2 DIABETES MELLITUS
     Dates: start: 20081201, end: 2009
  4. INSULIN [Concomitant]
  5. GLYBURIDE [Concomitant]
  6. SYNTHROID [Concomitant]
     Dosage: 125MCG TAB
  7. LEVOTHYROXINE SODIUM [Concomitant]
     Dosage: TAB
     Route: 048
  8. GLIMEPIRIDE [Concomitant]
     Dosage: TAB
     Route: 048
  9. GLUCOPHAGE TABS 500 MG [Concomitant]
     Route: 048
  10. CIALIS [Concomitant]
     Dosage: TAB

REACTIONS (1)
  - Pancreatic carcinoma [Fatal]
